FAERS Safety Report 12927514 (Version 2)
Quarter: 2017Q4

REPORT INFORMATION
  Report Type: Spontaneous
  Country: US (occurrence: US)
  Receive Date: 20161109
  Receipt Date: 20171109
  Transmission Date: 20180320
  Serious: No
  Sender: FDA-Public Use
  Company Number: US-ALLERGAN-1670385US

PATIENT
  Sex: Female
  Weight: 62.59 kg

DRUGS (2)
  1. TRAVATAN [Concomitant]
     Active Substance: TRAVOPROST
     Indication: GLAUCOMA
     Dosage: 2 GTT, QPM
     Route: 047
  2. ALPHAGAN P [Suspect]
     Active Substance: BRIMONIDINE TARTRATE
     Indication: GLAUCOMA
     Dosage: 2 GTT, QAM
     Route: 047
     Dates: start: 2014, end: 20160917

REACTIONS (13)
  - Panic attack [Unknown]
  - Photophobia [Not Recovered/Not Resolved]
  - Lacrimation increased [Recovering/Resolving]
  - Dry eye [Recovering/Resolving]
  - Ocular hyperaemia [Recovering/Resolving]
  - Hypersensitivity [Recovering/Resolving]
  - Intraocular pressure increased [Recovering/Resolving]
  - Inappropriate schedule of drug administration [Unknown]
  - Conjunctivitis viral [Unknown]
  - Halo vision [Recovering/Resolving]
  - Eye pruritus [Recovering/Resolving]
  - Optic nerve injury [Recovering/Resolving]
  - Vision blurred [Recovering/Resolving]

NARRATIVE: CASE EVENT DATE: 2014
